FAERS Safety Report 19826407 (Version 3)
Quarter: 2021Q4

REPORT INFORMATION
  Report Type: Other
  Country: JP (occurrence: JP)
  Receive Date: 20210914
  Receipt Date: 20211027
  Transmission Date: 20220303
  Serious: Yes (Other)
  Sender: FDA-Public Use
  Company Number: JP-CHUGAI-A2021005459ROCHE

PATIENT
  Age: 77 Year
  Sex: Female
  Weight: 59.9 kg

DRUGS (6)
  1. ATEZOLIZUMAB [Suspect]
     Active Substance: ATEZOLIZUMAB
     Indication: Lung adenocarcinoma
     Route: 041
     Dates: start: 20201105, end: 20210517
  2. CODEINE PHOSPHATE [Suspect]
     Active Substance: CODEINE PHOSPHATE
     Indication: Product used for unknown indication
     Route: 065
  3. PEMETREXED DISODIUM [Suspect]
     Active Substance: PEMETREXED DISODIUM
     Indication: Lung adenocarcinoma
     Dosage: DOSAGE: 750 MG AND DOSE INTERVAL UNCERTAINTY
     Route: 041
     Dates: start: 20201105, end: 20210125
  4. PEMETREXED DISODIUM [Suspect]
     Active Substance: PEMETREXED DISODIUM
     Dosage: DOSE INTERVAL UNCERTAINTY
     Route: 041
     Dates: start: 20210222, end: 20210517
  5. CARBOPLATIN [Suspect]
     Active Substance: CARBOPLATIN
     Indication: Lung adenocarcinoma
     Dosage: DOSAGE: 460 MG AND DOSE INTERVAL UNCERTAINTY
     Route: 041
     Dates: start: 20201105
  6. CARBOPLATIN [Suspect]
     Active Substance: CARBOPLATIN
     Dosage: DOSAGE: 500 MG AND DOSE INTERVAL UNCERTAINTY
     Route: 041

REACTIONS (6)
  - Malaise [Recovered/Resolved]
  - Amylase increased [Not Recovered/Not Resolved]
  - Injection site extravasation [Recovered/Resolved]
  - Nausea [Recovered/Resolved]
  - Decreased appetite [Recovered/Resolved]
  - Anaemia [Not Recovered/Not Resolved]

NARRATIVE: CASE EVENT DATE: 20201105
